FAERS Safety Report 11915380 (Version 1)
Quarter: 2016Q1

REPORT INFORMATION
  Report Type: Spontaneous
  Country: FR (occurrence: FR)
  Receive Date: 20160114
  Receipt Date: 20160114
  Transmission Date: 20160526
  Serious: Yes (Life-Threatening, Hospitalization, Other)
  Sender: FDA-Public Use
  Company Number: FR-BRISTOL-MYERS SQUIBB COMPANY-11527041

PATIENT
  Age: 42 Year
  Sex: Female

DRUGS (5)
  1. NORVIR [Suspect]
     Active Substance: RITONAVIR
     Indication: HIV TEST POSITIVE
     Dosage: 600 MG, QD
     Route: 048
     Dates: start: 20000515, end: 20010824
  2. VIDEX [Suspect]
     Active Substance: DIDANOSINE
     Indication: HIV TEST POSITIVE
     Dosage: 250 MG, QD
     Route: 048
     Dates: start: 20000515, end: 20010824
  3. ZERIT [Suspect]
     Active Substance: STAVUDINE
     Indication: HIV TEST POSITIVE
     Dosage: 60 MG, QD
     Route: 048
     Dates: start: 20000515, end: 20010824
  4. INVIRASE [Suspect]
     Active Substance: SAQUINAVIR MESYLATE
     Indication: HIV TEST POSITIVE
     Dosage: 400 MG, QD
     Route: 048
     Dates: start: 20000515, end: 20010824
  5. BACTRIM [Concomitant]
     Active Substance: SULFAMETHOXAZOLE\TRIMETHOPRIM
     Indication: PRODUCT USED FOR UNKNOWN INDICATION
     Route: 065

REACTIONS (6)
  - Pregnancy [Recovered/Resolved]
  - Caesarean section [Unknown]
  - Lactic acidosis [Not Recovered/Not Resolved]
  - Live birth [Unknown]
  - Blood uric acid increased [Unknown]
  - Pneumonitis [Unknown]

NARRATIVE: CASE EVENT DATE: 20010403
